FAERS Safety Report 9858625 (Version 1)
Quarter: 2014Q1

REPORT INFORMATION
  Report Type: Spontaneous
  Country: US (occurrence: None)
  Receive Date: 20140130
  Receipt Date: 20140130
  Transmission Date: 20141002
  Serious: Yes (Other)
  Sender: FDA-Public Use
  Company Number: None

PATIENT
  Age: 68 Year
  Sex: Male

DRUGS (1)
  1. OBINUTUZUMAB [Suspect]
     Route: 042

REACTIONS (5)
  - Hypotension [None]
  - Cold sweat [None]
  - Dizziness [None]
  - Infusion related reaction [None]
  - Chills [None]
